FAERS Safety Report 7340493-3 (Version None)
Quarter: 2011Q1

REPORT INFORMATION
  Report Type: 
  Country: None (occurrence: None)
  Receive Date: 20110228
  Receipt Date: 20110210
  Transmission Date: 20110831
  Serious: Yes (Other)
  Sender: FDA-Public Use
  Company Number: 2011MA001460

PATIENT
  Age: 39 Year
  Sex: Male

DRUGS (2)
  1. FLUOXETINE [Suspect]
     Indication: DEPRESSION
     Dosage: 20MG; QD; PO
     Route: 048
     Dates: start: 20110120
  2. ANTIDEPRESSANTS [Concomitant]

REACTIONS (4)
  - ANXIETY [None]
  - MUSCLE TWITCHING [None]
  - FEELING ABNORMAL [None]
  - NAUSEA [None]
